FAERS Safety Report 21132491 (Version 1)
Quarter: 2022Q3

REPORT INFORMATION
  Report Type: Spontaneous
  Country: US (occurrence: None)
  Receive Date: 20220726
  Receipt Date: 20220726
  Transmission Date: 20221027
  Serious: Yes (Other)
  Sender: FDA-Public Use
  Company Number: None

PATIENT
  Age: 32 Year
  Sex: Female
  Weight: 96.2 kg

DRUGS (1)
  1. EPIPEN [Suspect]
     Active Substance: EPINEPHRINE
     Indication: Asthma
     Dosage: FREQUENCY : AS NEEDED;?
     Route: 030

REACTIONS (6)
  - Wrong technique in product usage process [None]
  - Device use error [None]
  - Skin laceration [None]
  - Needle issue [None]
  - Device defective [None]
  - Injection site injury [None]

NARRATIVE: CASE EVENT DATE: 20220713
